FAERS Safety Report 24142802 (Version 3)
Quarter: 2024Q3

REPORT INFORMATION
  Report Type: Spontaneous
  Country: BE (occurrence: BE)
  Receive Date: 20240726
  Receipt Date: 20240827
  Transmission Date: 20241017
  Serious: No
  Sender: PFIZER
  Company Number: BE-PFIZER INC-202400224559

PATIENT
  Age: 72 Year
  Sex: Female

DRUGS (1)
  1. LORLATINIB [Suspect]
     Active Substance: LORLATINIB
     Indication: Non-small cell lung cancer
     Dosage: 75 MG
     Dates: start: 202401, end: 20240701

REACTIONS (1)
  - Carpal tunnel syndrome [Unknown]
